FAERS Safety Report 8494097-X (Version None)
Quarter: 2012Q3

REPORT INFORMATION
  Report Type: 
  Country: None (occurrence: None)
  Receive Date: 20120702
  Receipt Date: 20120702
  Transmission Date: 20120928
  Serious: Yes (Hospitalization)
  Sender: FDA-Public Use
  Company Number: None

PATIENT
  Sex: Female
  Weight: 89.8122 kg

DRUGS (1)
  1. LORATADINE [Suspect]
     Indication: EAR INFECTION
     Dosage: 10MG 1 PILL AT BED
     Dates: start: 20120612, end: 20120616

REACTIONS (2)
  - VERTIGO [None]
  - DIZZINESS [None]
